FAERS Safety Report 17585136 (Version 1)
Quarter: 2020Q1

REPORT INFORMATION
  Report Type: Report from Study
  Country: None (occurrence: US)
  Receive Date: 20200326
  Receipt Date: 20200326
  Transmission Date: 20200409
  Serious: No
  Sender: FDA-Public Use
  Company Number: US-BIOVITRUM-2020US0523

PATIENT
  Sex: Female

DRUGS (2)
  1. KINERET [Suspect]
     Active Substance: ANAKINRA
     Dosage: 100 MG ONE DAY 50 MG NEXT DAY
     Route: 058
  2. KINERET [Suspect]
     Active Substance: ANAKINRA
     Indication: PYREXIA
     Route: 058
     Dates: start: 20191029

REACTIONS (4)
  - Ear infection [Unknown]
  - Skin infection [Unknown]
  - Off label use [Not Recovered/Not Resolved]
  - Staphylococcal skin infection [Unknown]
